FAERS Safety Report 9663923 (Version 1)
Quarter: 2013Q4

REPORT INFORMATION
  Report Type: Spontaneous
  Country: US (occurrence: None)
  Receive Date: 20131030
  Receipt Date: 20131030
  Transmission Date: 20140711
  Serious: Yes (Other)
  Sender: FDA-Public Use
  Company Number: None

PATIENT
  Age: 58 Year
  Sex: Male
  Weight: 120.2 kg

DRUGS (12)
  1. ACTOS [Suspect]
     Indication: DIABETES MELLITUS
     Route: 048
     Dates: start: 20001201, end: 20050810
  2. GLYBURIDE [Concomitant]
  3. METFORMIN [Concomitant]
  4. ENALAPRIL [Concomitant]
  5. CHLORTHALIDONE [Concomitant]
  6. CRESTOR [Concomitant]
  7. DILTIAZEM [Concomitant]
  8. 81 MG ASPIRIN [Concomitant]
  9. LEVEMIR [Concomitant]
  10. MAGNESIUM [Concomitant]
  11. 1-A-DAY MEN^S FORMULAT VITAMINS [Concomitant]
  12. ZYRTEC [Concomitant]

REACTIONS (5)
  - Dyspnoea [None]
  - Anaemia [None]
  - Oedema [None]
  - Weight increased [None]
  - Weight loss poor [None]
